FAERS Safety Report 13318102 (Version 1)
Quarter: 2017Q1

REPORT INFORMATION
  Report Type: Spontaneous
  Country: DE (occurrence: DE)
  Receive Date: 20170310
  Receipt Date: 20170310
  Transmission Date: 20170428
  Serious: Yes (Other)
  Sender: FDA-Public Use
  Company Number: DE-009507513-1703DEU003286

PATIENT
  Age: 75 Year
  Sex: Male

DRUGS (2)
  1. NASONEX [Suspect]
     Active Substance: MOMETASONE FUROATE
     Indication: INFECTION
     Dosage: UNK UNK, BID
     Route: 045
     Dates: start: 20170214
  2. NASONEX [Suspect]
     Active Substance: MOMETASONE FUROATE
     Indication: SINUSITIS

REACTIONS (3)
  - Conjunctival haemorrhage [Unknown]
  - Eye swelling [Unknown]
  - Dry skin [Unknown]

NARRATIVE: CASE EVENT DATE: 2017
